FAERS Safety Report 4548558-6 (Version None)
Quarter: 2005Q1

REPORT INFORMATION
  Report Type: 
  Country: None (occurrence: None)
  Receive Date: 20050106
  Receipt Date: 20041226
  Transmission Date: 20050727
  Serious: Yes (Other)
  Sender: FDA-Public Use
  Company Number: 200416262BCC

PATIENT
  Age: 21 Year
  Sex: Female
  Weight: 56.6996 kg

DRUGS (2)
  1. ALEVE [Suspect]
     Indication: SUICIDE ATTEMPT
     Dosage: 2200 MG, ONCE, ORAL
     Route: 048
     Dates: start: 20041226
  2. ETHANOL [Suspect]
     Indication: SUICIDE ATTEMPT

REACTIONS (4)
  - ABDOMINAL PAIN [None]
  - FALL [None]
  - INTENTIONAL MISUSE [None]
  - SUICIDE ATTEMPT [None]
